FAERS Safety Report 4497737-5 (Version None)
Quarter: 2004Q4

REPORT INFORMATION
  Report Type: 
  Country: None (occurrence: None)
  Receive Date: 20041104
  Receipt Date: 20041026
  Transmission Date: 20050328
  Serious: Yes (Other)
  Sender: FDA-Public Use
  Company Number: HQWYE107327OCT04

PATIENT

DRUGS (1)
  1. CORDARONE [Suspect]
     Dosage: 200MG TABLET
     Route: 048

REACTIONS (2)
  - SKIN CANCER [None]
  - SKIN DISCOLOURATION [None]
